FAERS Safety Report 8950440 (Version 1)
Quarter: 2012Q4

REPORT INFORMATION
  Report Type: 
  Country: FR (occurrence: FR)
  Receive Date: 20121207
  Receipt Date: 20121207
  Transmission Date: 20130627
  Serious: Yes (Hospitalization, Other)
  Sender: FDA-Public Use
  Company Number: FR-009507513-1212FRA001522

PATIENT
  Age: 85 Year
  Sex: Female

DRUGS (5)
  1. INVANZ [Suspect]
     Dosage: 1 g, qd
     Route: 042
     Dates: start: 20120926, end: 20121013
  2. TAVANIC [Suspect]
     Dosage: 250 mg, bid
     Route: 048
     Dates: start: 20120924, end: 20121013
  3. DIFFU-K [Concomitant]
     Dosage: UNK
  4. INEXIUM [Concomitant]
     Dosage: UNK
     Route: 048
  5. BRICANYL [Concomitant]
     Dosage: 1 DF, bid
     Route: 055

REACTIONS (5)
  - Confusional state [Recovered/Resolved]
  - Renal failure acute [Recovered/Resolved]
  - Pyrexia [Recovered/Resolved]
  - Proteinuria [Not Recovered/Not Resolved]
  - Eosinophilia [Recovered/Resolved]
